FAERS Safety Report 4859866-3 (Version None)
Quarter: 2005Q4

REPORT INFORMATION
  Report Type: 
  Country: None (occurrence: None)
  Receive Date: 20051215
  Receipt Date: 20051206
  Transmission Date: 20060501
  Serious: Yes (Other)
  Sender: FDA-Public Use
  Company Number: S05-USA-04661-01

PATIENT
  Age: 54 Year
  Sex: Male

DRUGS (4)
  1. CAMPRAL [Suspect]
     Indication: ALCOHOLISM
     Dosage: 666 MG TID PO
     Route: 048
     Dates: start: 20050710, end: 20050825
  2. SERTRALINE HCL [Concomitant]
  3. BUPROPION [Concomitant]
  4. PRILOSEC [Concomitant]

REACTIONS (2)
  - BLINDNESS UNILATERAL [None]
  - OPTIC ISCHAEMIC NEUROPATHY [None]
